FAERS Safety Report 5217473-7 (Version None)
Quarter: 2007Q1

REPORT INFORMATION
  Report Type: 
  Country: None (occurrence: None)
  Receive Date: 20070119
  Receipt Date: 20070103
  Transmission Date: 20070707
  Serious: Yes (Hospitalization)
  Sender: FDA-Public Use
  Company Number: 2007000022

PATIENT
  Age: 46 Year
  Sex: Female

DRUGS (10)
  1. ERLOTINIB (TABLET) [Suspect]
     Indication: GASTROINTESTINAL CARCINOMA
     Dosage: 150 MG (QD), ORAL
     Route: 048
     Dates: start: 20061010, end: 20061201
  2. BEVACIZUMAB (INJECTION FOR INFUSION) [Suspect]
     Indication: GASTROINTESTINAL CARCINOMA
     Dosage: 610 MG (Q 14 DAYS), INTRAVENOUS
     Route: 042
     Dates: start: 20061010
  3. LYRICA [Concomitant]
  4. PRIMPERAN TAB [Concomitant]
  5. LACTULOSE [Concomitant]
  6. ACTILAX (ACTILAX) [Concomitant]
  7. PREDNISOLONE [Concomitant]
  8. LORAZEPAM [Concomitant]
  9. ACETAMINOPHEN [Concomitant]
  10. CONTALGIN (MORPHINE SULFATE) [Concomitant]

REACTIONS (2)
  - DISEASE PROGRESSION [None]
  - OESOPHAGOBRONCHIAL FISTULA [None]
